FAERS Safety Report 7944786-8 (Version None)
Quarter: 2011Q4

REPORT INFORMATION
  Report Type: 
  Country: None (occurrence: None)
  Receive Date: 20111122
  Receipt Date: 20110824
  Transmission Date: 20120403
  Serious: No
  Sender: FDA-Public Use
  Company Number: PHHY2011US55264

PATIENT
  Age: 40 Year
  Sex: Female
  Weight: 54.4 kg

DRUGS (1)
  1. GILENYA [Suspect]
     Indication: MULTIPLE SCLEROSIS
     Dosage: 0,5 MG, QD, ORAL
     Route: 048
     Dates: start: 20110617

REACTIONS (8)
  - ABDOMINAL DISCOMFORT [None]
  - BACK PAIN [None]
  - NAUSEA [None]
  - ASPARTATE AMINOTRANSFERASE INCREASED [None]
  - ALANINE AMINOTRANSFERASE INCREASED [None]
  - HEART RATE DECREASED [None]
  - FATIGUE [None]
  - CHEST DISCOMFORT [None]
